FAERS Safety Report 19662165 (Version 1)
Quarter: 2021Q3

REPORT INFORMATION
  Report Type: Spontaneous
  Country: CN (occurrence: CN)
  Receive Date: 20210805
  Receipt Date: 20210805
  Transmission Date: 20211014
  Serious: Yes (Hospitalization)
  Sender: FDA-Public Use
  Company Number: CN-ASTRAZENECA-2021A653259

PATIENT
  Age: 767 Month
  Sex: Male

DRUGS (3)
  1. NEXIUM [Suspect]
     Active Substance: ESOMEPRAZOLE MAGNESIUM
     Indication: HELICOBACTER INFECTION
     Dosage: ON AN EMPTY STOMACH
     Route: 048
     Dates: start: 20210608, end: 20210611
  2. CLARITHROMYCIN. [Suspect]
     Active Substance: CLARITHROMYCIN
     Indication: HELICOBACTER INFECTION
     Route: 048
     Dates: start: 20210608, end: 20210613
  3. SUCRALFATE. [Suspect]
     Active Substance: SUCRALFATE
     Indication: HELICOBACTER INFECTION
     Route: 048
     Dates: start: 20210608, end: 20210616

REACTIONS (10)
  - Eyelid rash [Recovering/Resolving]
  - Skin erosion [Recovering/Resolving]
  - Eye swelling [Recovering/Resolving]
  - Skin lesion [Recovering/Resolving]
  - Erythema [Recovering/Resolving]
  - Papule [Recovering/Resolving]
  - Pruritus [Recovering/Resolving]
  - Discharge [Recovering/Resolving]
  - Skin exfoliation [Recovering/Resolving]
  - Rash [Recovering/Resolving]

NARRATIVE: CASE EVENT DATE: 202106
